FAERS Safety Report 11147162 (Version 1)
Quarter: 2015Q2

REPORT INFORMATION
  Report Type: Spontaneous
  Country: US (occurrence: US)
  Receive Date: 20150528
  Receipt Date: 20150528
  Transmission Date: 20150821
  Serious: Yes (Life-Threatening, Hospitalization, Disabling, Other)
  Sender: FDA-Public Use
  Company Number: US-GLAXOSMITHKLINE-US2015068463

PATIENT
  Age: 47 Year
  Sex: Female

DRUGS (9)
  1. LAMICTAL [Suspect]
     Active Substance: LAMOTRIGINE
     Indication: EPILEPSY
     Dosage: 450 MG, QD
     Route: 048
     Dates: end: 20150421
  2. DILANTIN [Concomitant]
     Active Substance: PHENYTOIN
  3. LAMICTAL [Suspect]
     Active Substance: LAMOTRIGINE
     Dosage: 300 MG, QD
     Route: 048
     Dates: start: 20150421
  4. LAMICTAL [Suspect]
     Active Substance: LAMOTRIGINE
     Dosage: 100 MG, U
  5. PHENOBARBITAL. [Concomitant]
     Active Substance: PHENOBARBITAL
  6. DEPAKOTE [Concomitant]
     Active Substance: DIVALPROEX SODIUM
  7. ZONISAMIDE. [Concomitant]
     Active Substance: ZONISAMIDE
  8. LAMICTAL [Suspect]
     Active Substance: LAMOTRIGINE
     Dosage: 100 MG, U
  9. LAMICTAL [Suspect]
     Active Substance: LAMOTRIGINE
     Dosage: 250 MG, QD
     Route: 048

REACTIONS (17)
  - Headache [Recovered/Resolved]
  - Vision blurred [Recovered/Resolved]
  - Diplopia [Recovered/Resolved]
  - Cognitive disorder [Recovered/Resolved]
  - Blood urea increased [Recovering/Resolving]
  - Toxicity to various agents [Recovered/Resolved]
  - Nystagmus [Recovered/Resolved]
  - Anticonvulsant drug level increased [Recovering/Resolving]
  - Tremor [Recovered/Resolved]
  - Sedation [Recovered/Resolved]
  - Cerebellar syndrome [Recovered/Resolved]
  - Perseveration [Recovered/Resolved]
  - Extra dose administered [Unknown]
  - Vomiting [Recovered/Resolved]
  - Dehydration [Unknown]
  - Ataxia [Recovered/Resolved]
  - Liver disorder [Unknown]

NARRATIVE: CASE EVENT DATE: 20150329
